FAERS Safety Report 6172352-6 (Version None)
Quarter: 2009Q2

REPORT INFORMATION
  Report Type: 
  Country: None (occurrence: None)
  Receive Date: 20090429
  Receipt Date: 20090226
  Transmission Date: 20091009
  Serious: No
  Sender: FDA-Public Use
  Company Number: US-BAYER-200910777BCC

PATIENT
  Age: 76 Year
  Sex: Male
  Weight: 79 kg

DRUGS (5)
  1. ALEVE [Suspect]
     Indication: NERVE INJURY
     Dosage: UNIT DOSE: 220 MG
     Route: 048
     Dates: start: 20090101, end: 20090226
  2. LISINOPRIL [Concomitant]
     Indication: DRUG USE FOR UNKNOWN INDICATION
     Route: 065
  3. AMARYL [Concomitant]
     Indication: DRUG USE FOR UNKNOWN INDICATION
     Route: 065
  4. PREVACID [Concomitant]
     Indication: DRUG USE FOR UNKNOWN INDICATION
     Route: 065
  5. LYRICA [Concomitant]
     Indication: DRUG USE FOR UNKNOWN INDICATION
     Route: 065

REACTIONS (2)
  - ABDOMINAL DISTENSION [None]
  - MUSCULAR WEAKNESS [None]
